FAERS Safety Report 7603792-3 (Version None)
Quarter: 2011Q3

REPORT INFORMATION
  Report Type: 
  Country: None (occurrence: None)
  Receive Date: 20110712
  Receipt Date: 20110701
  Transmission Date: 20111222
  Serious: Yes (Other)
  Sender: FDA-Public Use
  Company Number: US-GLAXOSMITHKLINE-A0936184A

PATIENT
  Sex: Male

DRUGS (1)
  1. AVANDIA [Suspect]
     Route: 048

REACTIONS (5)
  - PANCREATIC INJURY [None]
  - CEREBROVASCULAR ACCIDENT [None]
  - APPARENT LIFE THREATENING EVENT [None]
  - TYPE 1 DIABETES MELLITUS [None]
  - MYOCARDIAL INFARCTION [None]
